FAERS Safety Report 15715120 (Version 3)
Quarter: 2019Q1

REPORT INFORMATION
  Report Type: Spontaneous
  Country: CA (occurrence: CA)
  Receive Date: 20181212
  Receipt Date: 20190305
  Transmission Date: 20190417
  Serious: Yes (Hospitalization, Other)
  Sender: FDA-Public Use
  Company Number: CA-PFIZER INC-2018503484

PATIENT
  Age: 54 Year
  Sex: Female
  Weight: 58 kg

DRUGS (15)
  1. REVATIO [Suspect]
     Active Substance: SILDENAFIL CITRATE
     Dosage: 2 DF, 3X/DAY
  2. VITAMIN D [Concomitant]
     Active Substance: CHOLECALCIFEROL
     Dosage: UNK
  3. REVATIO [Suspect]
     Active Substance: SILDENAFIL CITRATE
     Indication: PULMONARY ARTERIAL HYPERTENSION
     Dosage: 20 MG
     Route: 048
     Dates: start: 20180928, end: 20181124
  4. FENTANYL. [Concomitant]
     Active Substance: FENTANYL
     Dosage: UNK
  5. ASA [Concomitant]
     Active Substance: ASPIRIN
     Dosage: UNK
  6. VENTOLINE [SALBUTAMOL] [Concomitant]
     Active Substance: ALBUTEROL SULFATE
     Dosage: UNK
  7. VITAMIN B12 [Concomitant]
     Active Substance: CYANOCOBALAMIN
     Dosage: UNK
  8. CALCIUM [Concomitant]
     Active Substance: CALCIUM
     Dosage: UNK
  9. REVATIO [Suspect]
     Active Substance: SILDENAFIL CITRATE
     Dosage: 3 DF, 3X/DAY
     Dates: start: 201810
  10. TRAZODONE [Concomitant]
     Active Substance: TRAZODONE HYDROCHLORIDE
     Dosage: UNK
  11. MAGNESIUM [Concomitant]
     Active Substance: MAGNESIUM
     Dosage: UNK
  12. CANNABIDIOL [Concomitant]
     Active Substance: CANNABIDIOL
     Dosage: UNK
  13. COLLAGEN [Concomitant]
     Active Substance: COLLAGEN
     Dosage: UNK
  14. ULTIBRO BREEZHALER [Concomitant]
     Active Substance: GLYCOPYRRONIUM\INDACATEROL
     Dosage: UNK
  15. PROBIOTICS [Concomitant]
     Active Substance: PROBIOTICS NOS
     Dosage: UNK

REACTIONS (14)
  - Nightmare [Unknown]
  - Pollakiuria [Not Recovered/Not Resolved]
  - Feeling abnormal [Unknown]
  - Hypertonic bladder [Not Recovered/Not Resolved]
  - Bladder spasm [Unknown]
  - Panic attack [Unknown]
  - Amnesia [Unknown]
  - Dizziness [Unknown]
  - Anxiety [Unknown]
  - Hot flush [Unknown]
  - Feeling jittery [Unknown]
  - Prescribed overdose [Unknown]
  - Dyspnoea [Recovering/Resolving]
  - Micturition urgency [Not Recovered/Not Resolved]

NARRATIVE: CASE EVENT DATE: 2018
